FAERS Safety Report 21259476 (Version 5)
Quarter: 2022Q4

REPORT INFORMATION
  Report Type: Spontaneous
  Country: UY (occurrence: UY)
  Receive Date: 20220826
  Receipt Date: 20221027
  Transmission Date: 20230113
  Serious: Yes (Hospitalization)
  Sender: FDA-Public Use
  Company Number: UY-PFIZER INC-PV202200049826

PATIENT
  Age: 12 Year
  Sex: Female

DRUGS (3)
  1. GENOTROPIN [Suspect]
     Active Substance: SOMATROPIN
     Indication: Turner^s syndrome
     Dosage: 1.5 TO 2MG, 7 TIMES PER WEEK
     Dates: start: 20150920
  2. GENOTROPIN [Suspect]
     Active Substance: SOMATROPIN
     Dosage: 17 CLICKS INSTEAD OF 18 CLICKS AS IT SHOULD BE
  3. ESTROGEL [Concomitant]
     Active Substance: ESTRADIOL
     Dosage: UNK

REACTIONS (4)
  - Adverse event [Unknown]
  - Wrong technique in device usage process [Unknown]
  - Device leakage [Unknown]
  - Incorrect dose administered [Unknown]

NARRATIVE: CASE EVENT DATE: 20220101
